FAERS Safety Report 12915496 (Version 1)
Quarter: 2016Q4

REPORT INFORMATION
  Report Type: Spontaneous
  Country: US (occurrence: US)
  Receive Date: 20161106
  Receipt Date: 20161106
  Transmission Date: 20170207
  Serious: No
  Sender: FDA-Public Use
  Company Number: US-RELYPSA-RLY2016002999

PATIENT
  Sex: Male

DRUGS (10)
  1. VELTASSA [Suspect]
     Active Substance: PATIROMER
     Indication: HYPERKALAEMIA
     Dosage: 8.4 G, QD
     Route: 048
  2. ALBUTEROL SULFATE. [Concomitant]
     Active Substance: ALBUTEROL SULFATE
  3. AMLODIPINE BESYLATE. [Concomitant]
     Active Substance: AMLODIPINE BESYLATE
  4. LANTUS [Concomitant]
     Active Substance: INSULIN GLARGINE
  5. LABETALOL HCL [Concomitant]
     Active Substance: LABETALOL HYDROCHLORIDE
  6. HUMALOG [Concomitant]
     Active Substance: INSULIN LISPRO
  7. MURINE TEARS [Concomitant]
  8. MULTIVITAMIN [Concomitant]
     Active Substance: VITAMINS
  9. ATORVASTATIN CALCIUM. [Concomitant]
     Active Substance: ATORVASTATIN CALCIUM
  10. FERROUS FUMARATE [Concomitant]
     Active Substance: FERROUS FUMARATE

REACTIONS (2)
  - Dyspepsia [Unknown]
  - Flatulence [Unknown]
